FAERS Safety Report 4560275-5 (Version None)
Quarter: 2005Q1

REPORT INFORMATION
  Report Type: 
  Country: None (occurrence: None)
  Receive Date: 20050125
  Receipt Date: 20050117
  Transmission Date: 20050727
  Serious: Yes (Hospitalization)
  Sender: FDA-Public Use
  Company Number: US-AMGEN-US108696

PATIENT
  Sex: Female

DRUGS (3)
  1. PROCRIT [Suspect]
     Indication: ANAEMIA
     Dates: start: 20040101
  2. INFLUENZA VACCINE [Suspect]
     Dates: start: 20041001
  3. WARFARIN SODIUM [Suspect]
     Dates: start: 20041001

REACTIONS (9)
  - BONE PAIN [None]
  - DECREASED APPETITE [None]
  - DEEP VEIN THROMBOSIS [None]
  - DEHYDRATION [None]
  - FATIGUE [None]
  - INFLUENZA LIKE ILLNESS [None]
  - MYALGIA [None]
  - NAUSEA [None]
  - SYNCOPE [None]
